FAERS Safety Report 4622640-7 (Version None)
Quarter: 2005Q1

REPORT INFORMATION
  Report Type: 
  Country: None (occurrence: None)
  Receive Date: 20050328
  Receipt Date: 20050328
  Transmission Date: 20050727
  Serious: Yes (Life-Threatening)
  Sender: FDA-Public Use
  Company Number: None

PATIENT
  Age: 38 Year
  Sex: Female

DRUGS (1)
  1. AVELOX [Suspect]
     Dosage: 400 MG ONE DAILY
     Dates: start: 20041221

REACTIONS (4)
  - ANAPHYLACTOID REACTION [None]
  - CHEST DISCOMFORT [None]
  - RASH GENERALISED [None]
  - WHEEZING [None]
